FAERS Safety Report 4356311-1 (Version None)
Quarter: 2004Q2

REPORT INFORMATION
  Report Type: 
  Country: None (occurrence: None)
  Receive Date: 20040512
  Receipt Date: 20040506
  Transmission Date: 20050107
  Serious: Yes (Death)
  Sender: FDA-Public Use
  Company Number: DE-GLAXOSMITHKLINE-B0332282A

PATIENT
  Age: 16 Year
  Sex: Female

DRUGS (4)
  1. BUSULPHAN [Suspect]
     Dosage: 8MGK UNKNOWN
  2. FLUDARABINE PHOSPHATE [Suspect]
     Dosage: 125MGM2 UNKNOWN
     Route: 065
  3. CYCLOPHOSPHAMIDE [Suspect]
     Dosage: 120MGK UNKNOWN
  4. ANTITHYMOCYTE GLOBULIN [Concomitant]
     Route: 065

REACTIONS (3)
  - ADENOVIRUS INFECTION [None]
  - GRAFT VERSUS HOST DISEASE [None]
  - LYMPHOPROLIFERATIVE DISORDER [None]
